FAERS Safety Report 8266675-4 (Version None)
Quarter: 2012Q2

REPORT INFORMATION
  Report Type: 
  Country: None (occurrence: None)
  Receive Date: 20120408
  Receipt Date: 20120402
  Transmission Date: 20120825
  Serious: No
  Sender: FDA-Public Use
  Company Number: US-TEVA-331384USA

PATIENT
  Sex: Male
  Weight: 74.91 kg

DRUGS (5)
  1. FENOFIBRATE [Concomitant]
     Indication: BLOOD TRIGLYCERIDES
     Dosage: 1 TABLET
     Route: 048
  2. PRAVASTATIN [Concomitant]
     Indication: HYPERCHOLESTEROLAEMIA
     Route: 048
  3. ATENOLOL [Concomitant]
     Indication: HYPERTENSION
     Route: 048
  4. PROAIR HFA [Suspect]
     Indication: DYSPNOEA
     Dosage: 180 MICROGRAM;
     Dates: start: 20120313, end: 20120317
  5. VALSARTAN [Concomitant]
     Indication: HYPERTENSION
     Dosage: 160MG/ 12.5MG
     Route: 048

REACTIONS (1)
  - PALPITATIONS [None]
